FAERS Safety Report 12809753 (Version 1)
Quarter: 2016Q4

REPORT INFORMATION
  Report Type: Report from Study
  Country: US (occurrence: US)
  Receive Date: 20161005
  Receipt Date: 20161005
  Transmission Date: 20170207
  Serious: Yes (Life-Threatening, Hospitalization, Other)
  Sender: FDA-Public Use
  Company Number: US-ROCHE-1133666

PATIENT
  Age: 71 Year
  Sex: Female
  Weight: 61.36 kg

DRUGS (5)
  1. CARBOPLATIN. [Suspect]
     Active Substance: CARBOPLATIN
     Indication: OVARIAN EPITHELIAL CANCER
     Dosage: CYCLE1, CYCLE2-6:6 OVER 30 MINS ON DAY1,
     Route: 042
     Dates: start: 20120418
  2. VELIPARIB [Suspect]
     Active Substance: VELIPARIB
     Indication: OVARIAN EPITHELIAL CANCER
     Dosage: CYCLE 1-6 TWICE DAILY?ALSO RECEIVED ON 10/MAY/2012, 31/MAY/2012,
     Route: 048
     Dates: start: 20120418
  3. VELIPARIB [Suspect]
     Active Substance: VELIPARIB
     Dosage: CYCLE 1-6 TWICE DAILY?ALSO RECEIVED ON  26/JUL/2012 AND 30/AUG/2012
     Route: 048
     Dates: start: 20120621
  4. BEVACIZUMAB [Suspect]
     Active Substance: BEVACIZUMAB
     Indication: OVARIAN EPITHELIAL CANCER
     Dosage: CYCLES 2-6:15MG/KG OVER 30-90 MINS ON DAY1, CYCLES 7-22:15 MG/KG IV OVER 30-90 MINS ON DAY1?ALSO REC
     Route: 042
     Dates: start: 20120510
  5. PACLITAXEL. [Suspect]
     Active Substance: PACLITAXEL
     Indication: OVARIAN EPITHELIAL CANCER
     Dosage: CYCLE1:175 MG/M2 OVER 3 HRS ON DAY1, CYCLE2-6:175 MG/M2 OVER 3 HRS ON DAY1,
     Route: 042
     Dates: start: 20120418

REACTIONS (9)
  - Platelet count decreased [Unknown]
  - Anaemia [Unknown]
  - Pyrexia [Unknown]
  - Neutrophil count decreased [Unknown]
  - Hypokalaemia [Unknown]
  - Dyspnoea [Unknown]
  - Platelet count decreased [Unknown]
  - Anaemia [Unknown]
  - White blood cell count decreased [Unknown]

NARRATIVE: CASE EVENT DATE: 20120807
